FAERS Safety Report 10409763 (Version 1)
Quarter: 2014Q3

REPORT INFORMATION
  Report Type: Spontaneous
  Country: US (occurrence: None)
  Receive Date: 20140822
  Receipt Date: 20140822
  Transmission Date: 20150326
  Serious: Yes (Hospitalization)
  Sender: FDA-Public Use
  Company Number: US-ZYDUS-004220

PATIENT
  Sex: Female

DRUGS (3)
  1. HYDROXYCARBAMIDE (HYDROXYCARBAMIDE) [Suspect]
     Active Substance: HYDROXYUREA
     Indication: MYELODYSPLASTIC SYNDROME
  2. AZATHIOPRINE (AZATHIOPRINE) [Suspect]
     Active Substance: AZATHIOPRINE
  3. PREDNISONE (PREDNISONE) [Suspect]
     Active Substance: PREDNISONE

REACTIONS (5)
  - Skin ulcer [None]
  - Thrombocytosis [None]
  - Wound infection staphylococcal [None]
  - Skin graft [None]
  - Superinfection [None]
